FAERS Safety Report 24371588 (Version 4)
Quarter: 2024Q4

REPORT INFORMATION
  Report Type: Spontaneous
  Country: JP (occurrence: JP)
  Receive Date: 20240927
  Receipt Date: 20241031
  Transmission Date: 20250115
  Serious: Yes (Other)
  Sender: PFIZER
  Company Number: JP-PFIZER INC-PV202400126360

PATIENT
  Age: 68 Year
  Sex: Male

DRUGS (5)
  1. SUTENT [Suspect]
     Active Substance: SUNITINIB MALATE
     Indication: Gastrointestinal stromal tumour
     Dosage: 50 MG/DAY FOR 4 WEEKS FOLLOWED BY 2 WEEKS OF REST
     Route: 048
     Dates: start: 20240705, end: 20240801
  2. SUTENT [Suspect]
     Active Substance: SUNITINIB MALATE
     Dosage: ADMINISTRATION FOR 4 WEEKS FOLLOWED BY 2 WEEKS OF REST
     Route: 048
     Dates: start: 20240903, end: 20241015
  3. ALLOID G [Concomitant]
     Active Substance: SODIUM ALGINATE
     Dosage: 10 ML, 4X/DAY, AFTER EVERY MEALS AND BEFORE BEDTIME
     Route: 048
  4. CAMOSTAT MESYLATE [Concomitant]
     Active Substance: CAMOSTAT MESYLATE
     Dosage: 1 DF, 3X/DAY, EVERY AFTER MEALS
  5. FUROSEMIDE NIG [Concomitant]
     Dosage: 1 DF, 2X/DAY, AFTER BREAKFAST AND DINNER

REACTIONS (5)
  - Myelosuppression [Recovered/Resolved]
  - Neutrophil count decreased [Recovered/Resolved]
  - White blood cell count decreased [Recovered/Resolved]
  - Platelet count decreased [Recovered/Resolved]
  - Red blood cell count decreased [Recovered/Resolved]

NARRATIVE: CASE EVENT DATE: 20240820
